FAERS Safety Report 5308828-0 (Version None)
Quarter: 2007Q2

REPORT INFORMATION
  Report Type: 
  Country: None (occurrence: None)
  Receive Date: 20070426
  Receipt Date: 20070416
  Transmission Date: 20071010
  Serious: Yes (Other)
  Sender: FDA-Public Use
  Company Number: AU-SANOFI-SYNTHELABO-A01200703979

PATIENT
  Age: 47 Year
  Sex: Male

DRUGS (1)
  1. STILNOX [Suspect]
     Dosage: UNK
     Route: 065

REACTIONS (1)
  - ABNORMAL BEHAVIOUR [None]
